FAERS Safety Report 8468917-9 (Version None)
Quarter: 2012Q2

REPORT INFORMATION
  Report Type: 
  Country: None (occurrence: None)
  Receive Date: 20120626
  Receipt Date: 20120618
  Transmission Date: 20120825
  Serious: Yes (Hospitalization)
  Sender: FDA-Public Use
  Company Number: US-BAXTER-2012BAX008434

PATIENT
  Sex: Male

DRUGS (1)
  1. DIANEAL [Suspect]
     Indication: PERITONEAL DIALYSIS
     Route: 033
     Dates: start: 20120105

REACTIONS (4)
  - STAPHYLOCOCCAL INFECTION [None]
  - PAIN [None]
  - ABDOMINAL PAIN UPPER [None]
  - PERITONEAL DIALYSIS COMPLICATION [None]
